FAERS Safety Report 6103242-2 (Version None)
Quarter: 2009Q1

REPORT INFORMATION
  Report Type: 
  Country: None (occurrence: None)
  Receive Date: 20090302
  Receipt Date: 20090216
  Transmission Date: 20090719
  Serious: Yes (Hospitalization, Other)
  Sender: FDA-Public Use
  Company Number: 09US001138

PATIENT
  Age: 17 Year
  Sex: Male

DRUGS (2)
  1. VALPROIC ACID [Suspect]
     Indication: EPILEPSY
     Dosage: 42 MG/KG, QD, OTHER; 96 MG/KG, QD, OTHER; 77 MG/KG, QD, OTHER
     Route: 050
  2. VALPROATE SODIUM [Concomitant]

REACTIONS (7)
  - ANTICONVULSANT DRUG LEVEL BELOW THERAPEUTIC [None]
  - COLOSTOMY [None]
  - CONSTIPATION [None]
  - CONVULSION [None]
  - DRUG DOSE OMISSION [None]
  - FAECALOMA [None]
  - POST PROCEDURAL COMPLICATION [None]
